FAERS Safety Report 8839246 (Version 1)
Quarter: 2012Q4

REPORT INFORMATION
  Report Type: 
  Country: NL (occurrence: NL)
  Receive Date: 20121015
  Receipt Date: 20121015
  Transmission Date: 20130627
  Serious: Yes (Hospitalization)
  Sender: FDA-Public Use
  Company Number: NL-JNJFOC-20121003957

PATIENT
  Age: 53 Year
  Sex: Female

DRUGS (4)
  1. REMICADE [Suspect]
     Indication: RHEUMATOID ARTHRITIS
     Route: 042
     Dates: start: 20010622, end: 20010806
  2. PIROXICAMUM [Concomitant]
     Route: 065
     Dates: start: 19940928
  3. METHOTREXATE [Concomitant]
     Route: 065
     Dates: start: 20010706, end: 20010806
  4. ARAVA [Concomitant]
     Route: 065
     Dates: start: 20000912, end: 20010608

REACTIONS (1)
  - Polymyositis [Not Recovered/Not Resolved]
